FAERS Safety Report 18778328 (Version 2)
Quarter: 2021Q1

REPORT INFORMATION
  Report Type: Spontaneous
  Country: IL (occurrence: IL)
  Receive Date: 20210123
  Receipt Date: 20210315
  Transmission Date: 20210419
  Serious: Yes (Death, Other)
  Sender: FDA-Public Use
  Company Number: IL-AMGEN-ISRSP2021009373

PATIENT

DRUGS (4)
  1. CARFILZOMIB [Suspect]
     Active Substance: CARFILZOMIB
     Indication: PLASMA CELL MYELOMA
     Dosage: 56 MILLIGRAM/SQ. METER, DAYS 1,8,15 (CY 1?9), D 1,15 (CY 10?18)
     Route: 042
  2. DARATUMUMAB [Concomitant]
     Active Substance: DARATUMUMAB
     Indication: PLASMA CELL MYELOMA
     Dosage: 16 MILLIGRAM/KILOGRAM, WEEKLY (CYCLE 1?2), Q14D (CYCLE 3?6), Q28D
     Route: 042
  3. DEXAMETHASONE. [Concomitant]
     Active Substance: DEXAMETHASONE
     Indication: PLASMA CELL MYELOMA
     Dosage: 40 MILLIGRAM,, (FRAIL: 20MG) WEEKLY
  4. LENALIDOMIDE [Concomitant]
     Active Substance: LENALIDOMIDE
     Indication: PLASMA CELL MYELOMA
     Dosage: 25 MILLIGRAM, (FRAIL: 15MG) DAY?21

REACTIONS (11)
  - Neutropenia [Unknown]
  - Asthenia [Unknown]
  - Plasma cell myeloma [Unknown]
  - Anaemia [Unknown]
  - Diarrhoea [Unknown]
  - Death [Fatal]
  - Pneumonia [Unknown]
  - Infection [Unknown]
  - Thrombocytopenia [Unknown]
  - Rash [Unknown]
  - Therapeutic product effect incomplete [Unknown]
